FAERS Safety Report 5004552-2 (Version None)
Quarter: 2006Q2

REPORT INFORMATION
  Report Type: 
  Country: None (occurrence: None)
  Receive Date: 20060511
  Receipt Date: 20060428
  Transmission Date: 20061013
  Serious: Yes (Hospitalization)
  Sender: FDA-Public Use
  Company Number: TRP_0767_2006

PATIENT
  Age: 54 Year
  Sex: Male

DRUGS (2)
  1. RIBASPHERE/RIBAVIRIN/THREE RIVERS PHARMA/ 600 MG [Suspect]
     Indication: HEPATITIS C
     Dosage: 1800 MG BID PO
     Route: 048
     Dates: start: 20060313, end: 20060327
  2. INTERFERON [Suspect]
     Indication: HEPATITIS C
     Dosage: DF SC
     Route: 058

REACTIONS (1)
  - CONFUSIONAL STATE [None]
